FAERS Safety Report 8971714 (Version 1)
Quarter: 2012Q4

REPORT INFORMATION
  Report Type: 
  Country: US (occurrence: US)
  Receive Date: 20121217
  Receipt Date: 20121217
  Transmission Date: 20130627
  Serious: No
  Sender: FDA-Public Use
  Company Number: US-VIIV HEALTHCARE LIMITED-A0957836A

PATIENT
  Age: 33 Year
  Sex: Female

DRUGS (4)
  1. LEXIVA [Suspect]
     Indication: PRODUCT USED FOR UNKNOWN INDICATION
     Dosage: 700MG Unknown
  2. TRUVADA [Concomitant]
  3. ACYCLOVIR [Concomitant]
  4. FLU VACCINE [Concomitant]

REACTIONS (4)
  - Flatulence [Unknown]
  - Eructation [Unknown]
  - Abdominal pain [Unknown]
  - Abdominal distension [Unknown]
